FAERS Safety Report 8372050-4 (Version None)
Quarter: 2012Q2

REPORT INFORMATION
  Report Type: 
  Country: None (occurrence: None)
  Receive Date: 20120520
  Receipt Date: 20120515
  Transmission Date: 20120825
  Serious: Yes (Other)
  Sender: FDA-Public Use
  Company Number: CA-AMGEN-CANSP2012028857

PATIENT
  Age: 55 Year
  Sex: Female

DRUGS (1)
  1. ARANESP [Suspect]
     Indication: RENAL FAILURE CHRONIC
     Dosage: 10 MG, Q3WK
     Dates: start: 20120307, end: 20120424

REACTIONS (1)
  - HAEMOGLOBIN INCREASED [None]
